FAERS Safety Report 5318950-0 (Version None)
Quarter: 2007Q2

REPORT INFORMATION
  Report Type: 
  Country: None (occurrence: None)
  Receive Date: 20070508
  Receipt Date: 20070507
  Transmission Date: 20071010
  Serious: Yes (Death)
  Sender: FDA-Public Use
  Company Number: US-BRISTOL-MYERS SQUIBB COMPANY-13538376

PATIENT
  Age: 64 Year
  Sex: Female

DRUGS (5)
  1. VEPESID [Suspect]
     Indication: LUNG CANCER METASTATIC
     Route: 048
  2. DEXAMETHASONE 0.5MG TAB [Concomitant]
  3. LORAZEPAM [Concomitant]
  4. OXYCODONE HCL [Concomitant]
  5. RADIATION THERAPY [Concomitant]

REACTIONS (1)
  - MALIGNANT NEOPLASM PROGRESSION [None]
